FAERS Safety Report 4284338-7 (Version None)
Quarter: 2004Q1

REPORT INFORMATION
  Report Type: 
  Country: None (occurrence: None)
  Receive Date: 20040130
  Receipt Date: 20040113
  Transmission Date: 20041129
  Serious: Yes (Death)
  Sender: FDA-Public Use
  Company Number: USA031254272

PATIENT
  Sex: Male
  Weight: 2 kg

DRUGS (6)
  1. ZYPREXA [Suspect]
  2. ATIVAN [Concomitant]
  3. PRENATAL VITAMINS [Concomitant]
  4. NICORETTE GUM(NICOTINE RESIN) [Concomitant]
  5. ENSURE [Concomitant]
  6. COLACE (DOCUSATE SODIUM) [Concomitant]

REACTIONS (3)
  - COMPLICATIONS OF MATERNAL EXPOSURE TO THERAPEUTIC DRUGS [None]
  - INTRA-UTERINE DEATH [None]
  - MATERNAL DRUGS AFFECTING FOETUS [None]
